FAERS Safety Report 9162581 (Version 1)
Quarter: 2013Q1

REPORT INFORMATION
  Report Type: Spontaneous
  Country: JP (occurrence: JP)
  Receive Date: 20130314
  Receipt Date: 20130314
  Transmission Date: 20140127
  Serious: Yes (Hospitalization)
  Sender: FDA-Public Use
  Company Number: JP-MYLANLABS-2013S1004993

PATIENT
  Age: 6 Decade
  Sex: Female

DRUGS (7)
  1. TELAPREVIR [Suspect]
     Indication: CHRONIC HEPATITIS C
     Dosage: 1500 MG/DAY
     Route: 065
  2. RIBAVIRIN [Suspect]
     Indication: CHRONIC HEPATITIS C
     Dosage: 400 MG/DAY
     Route: 065
  3. PEGINTERFERON ALFA-2B [Suspect]
     Indication: CHRONIC HEPATITIS C
     Dosage: 1.4 MICROG/KG/WEEK
     Route: 065
  4. ALLOPURINOL [Suspect]
     Dosage: 200 MG/DAY
     Route: 048
  5. PREDNISOLONE [Suspect]
     Dosage: QUANTUM LIBET/DAY
     Route: 061
  6. PREDNISOLONE [Suspect]
     Dosage: 20 MG/DAY
     Route: 048
  7. PREDNISOLONE [Suspect]
     Dosage: 90 MG/DAY
     Route: 050

REACTIONS (8)
  - Toxic epidermal necrolysis [Recovered/Resolved]
  - Hyperuricaemia [Unknown]
  - Anaemia [Unknown]
  - Pharyngitis bacterial [Unknown]
  - Cytomegalovirus test positive [Recovered/Resolved]
  - Blood beta-D-glucan increased [Recovered/Resolved]
  - Constipation [Unknown]
  - Haemorrhoids [Unknown]
